FAERS Safety Report 6644335-0 (Version None)
Quarter: 2010Q1

REPORT INFORMATION
  Report Type: 
  Country: None (occurrence: None)
  Receive Date: 20100322
  Receipt Date: 20100312
  Transmission Date: 20100710
  Serious: Yes (Other)
  Sender: FDA-Public Use
  Company Number: PHHY2010ZA15377

PATIENT
  Sex: Female

DRUGS (2)
  1. DIOVAN HCT [Suspect]
  2. AMLOC [Concomitant]
     Dosage: UNK
     Dates: start: 20080101

REACTIONS (1)
  - HYPERTENSION [None]
